FAERS Safety Report 4367784-2 (Version None)
Quarter: 2004Q2

REPORT INFORMATION
  Report Type: 
  Country: None (occurrence: None)
  Receive Date: 20040601
  Receipt Date: 20040505
  Transmission Date: 20050107
  Serious: Yes (Death, Hospitalization)
  Sender: FDA-Public Use
  Company Number: FR-MERCK-0405FRA00017

PATIENT
  Age: 39 Year
  Sex: Male

DRUGS (3)
  1. CRIXIVAN [Suspect]
     Indication: HIV INFECTION
     Route: 048
  2. NEVIRAPINE [Concomitant]
     Indication: HIV INFECTION
     Route: 048
  3. STAVUDINE [Concomitant]
     Indication: HIV INFECTION
     Route: 048

REACTIONS (4)
  - BONE MARROW DEPRESSION [None]
  - BURKITT'S LYMPHOMA [None]
  - SEPSIS [None]
  - TOLOSA-HUNT SYNDROME [None]
